FAERS Safety Report 24562141 (Version 1)
Quarter: 2024Q4

REPORT INFORMATION
  Report Type: Spontaneous
  Country: CZ (occurrence: CZ)
  Receive Date: 20241029
  Receipt Date: 20241029
  Transmission Date: 20250114
  Serious: Yes (Other)
  Sender: ROCHE
  Company Number: None

PATIENT
  Age: 75 Year
  Sex: Male
  Weight: 27 kg

DRUGS (5)
  1. BEVACIZUMAB [Suspect]
     Active Substance: BEVACIZUMAB
     Indication: Non-small cell lung cancer
     Dosage: 4 CYCLES
     Route: 065
     Dates: start: 202107, end: 202109
  2. ERLOTINIB [Suspect]
     Active Substance: ERLOTINIB
     Indication: Non-small cell lung cancer
     Dosage: FOURTH-LINE CHEMOTHERAPY
     Route: 065
     Dates: start: 2022, end: 2022
  3. CARBOPLATIN [Suspect]
     Active Substance: CARBOPLATIN
     Indication: Non-small cell lung cancer
     Dosage: 4 CYCLES
     Route: 065
     Dates: start: 202107, end: 202109
  4. PEMETREXED [Suspect]
     Active Substance: PEMETREXED
     Indication: Non-small cell lung cancer
     Dosage: 4 CYCLES IN COMBINATION WITH CARBOPLATIN AND BEVACIZUMAB AS FIRST-LINE CHEMOTHERAPY
     Route: 065
     Dates: start: 202002
  5. PEMETREXED [Suspect]
     Active Substance: PEMETREXED
     Dosage: 4 CYCLES IN COMBINATION WITH CARBOPLATIN AND BEVACIZUMAB AS FIRST-LINE CHEMOTHERAPY
     Route: 065
     Dates: start: 202107, end: 202109

REACTIONS (5)
  - Neutropenia [Recovered/Resolved]
  - Rash [Unknown]
  - Diarrhoea [Unknown]
  - Disease progression [Unknown]
  - Drug ineffective [Unknown]

NARRATIVE: CASE EVENT DATE: 20220101
